FAERS Safety Report 20614404 (Version 1)
Quarter: 2022Q1

REPORT INFORMATION
  Report Type: Spontaneous
  Country: US (occurrence: US)
  Receive Date: 20220321
  Receipt Date: 20220321
  Transmission Date: 20220423
  Serious: Yes (Hospitalization)
  Sender: FDA-Public Use
  Company Number: US-RISINGPHARMA-US-2022RISLIT00261

PATIENT
  Age: 9 Year
  Sex: Male

DRUGS (2)
  1. CLONIDINE HYDROCHLORIDE [Suspect]
     Active Substance: CLONIDINE HYDROCHLORIDE
     Indication: Somatotropin stimulation test
     Route: 065
  2. ARGININE [Suspect]
     Active Substance: ARGININE
     Indication: Somatotropin stimulation test
     Route: 065

REACTIONS (2)
  - Haematuria [Recovered/Resolved]
  - Product use in unapproved indication [Unknown]
